FAERS Safety Report 7580324-X (Version None)
Quarter: 2011Q2

REPORT INFORMATION
  Report Type: 
  Country: None (occurrence: None)
  Receive Date: 20110629
  Receipt Date: 20110623
  Transmission Date: 20111010
  Serious: Yes (Life-Threatening, Hospitalization)
  Sender: FDA-Public Use
  Company Number: NL-ROCHE-750086

PATIENT
  Sex: Female

DRUGS (3)
  1. BEVACIZUMAB [Suspect]
     Dosage: LAST DOSE PRIOR TO SAE: 14 APRIL 2011.
     Route: 042
     Dates: start: 20100910
  2. PACLITAXEL [Suspect]
     Dosage: LAST DOSE PRIOR TO SAE: 27 JANUARY 2011.
     Route: 042
     Dates: start: 20100827
  3. OMEPRAZOLE [Concomitant]
     Dates: start: 20100809

REACTIONS (3)
  - ATRIAL FIBRILLATION [None]
  - ANGINA PECTORIS [None]
  - AORTIC VALVE STENOSIS [None]
